FAERS Safety Report 17167874 (Version 1)
Quarter: 2019Q4

REPORT INFORMATION
  Report Type: Spontaneous
  Country: PL (occurrence: PL)
  Receive Date: 20191218
  Receipt Date: 20191218
  Transmission Date: 20200122
  Serious: Yes (Other)
  Sender: FDA-Public Use
  Company Number: PL-ROCHE-2495059

PATIENT
  Age: 49 Year
  Sex: Male

DRUGS (15)
  1. MYCOPHENOLATE MOFETIL. [Concomitant]
     Active Substance: MYCOPHENOLATE MOFETIL
     Indication: PERIPHERAL SENSORY NEUROPATHY
     Route: 042
  2. PREDNISONE. [Suspect]
     Active Substance: PREDNISONE
     Dosage: 50% DOSE REDUCED
     Route: 065
     Dates: start: 2017
  3. VINBLASTINE [Suspect]
     Active Substance: VINBLASTINE
     Dosage: 50% DOSE REDUCED
     Route: 065
     Dates: start: 2017
  4. IFOSFAMIDE. [Concomitant]
     Active Substance: IFOSFAMIDE
  5. PREDNISONE. [Suspect]
     Active Substance: PREDNISONE
     Indication: DIFFUSE LARGE B-CELL LYMPHOMA
     Dosage: 100 MG, QD
     Route: 065
     Dates: start: 2017
  6. VINBLASTINE [Suspect]
     Active Substance: VINBLASTINE
     Indication: DIFFUSE LARGE B-CELL LYMPHOMA
     Dosage: 10 MG, QD
     Route: 065
     Dates: start: 2017
  7. RITUXIMAB. [Suspect]
     Active Substance: RITUXIMAB
     Indication: DIFFUSE LARGE B-CELL LYMPHOMA
     Dosage: 375 MG/M2
     Route: 065
     Dates: start: 2017
  8. RITUXIMAB. [Suspect]
     Active Substance: RITUXIMAB
     Dosage: DOSE REDUCED BY 50%
     Route: 065
     Dates: start: 2017
  9. CYCLOPHOSPHAMIDE. [Suspect]
     Active Substance: CYCLOPHOSPHAMIDE
     Indication: DIFFUSE LARGE B-CELL LYMPHOMA
     Dosage: DOSE REDUCED BY 50%
     Route: 065
     Dates: start: 2017
  10. MYOCET [Suspect]
     Active Substance: DOXORUBICIN
     Indication: DIFFUSE LARGE B-CELL LYMPHOMA
     Dosage: 50% DOSE REDUCED
     Route: 065
     Dates: start: 2017
  11. GRANULOCYTE COLONY STIMULATING FACTOR [Concomitant]
     Active Substance: GRANULOCYTE COLONY-STIMULATING FACTOR NOS
     Indication: BLOOD DISORDER PROPHYLAXIS
     Dosage: UNK
     Route: 065
     Dates: start: 2017
  12. CYTARABINE. [Concomitant]
     Active Substance: CYTARABINE
  13. CYCLOPHOSPHAMIDE. [Suspect]
     Active Substance: CYCLOPHOSPHAMIDE
     Dosage: 750 MG/M2
     Route: 065
     Dates: start: 2017
  14. MYOCET [Suspect]
     Active Substance: DOXORUBICIN
     Dosage: 100 MG, QD
     Route: 065
     Dates: start: 2017
  15. ETOPOSIDE. [Concomitant]
     Active Substance: ETOPOSIDE

REACTIONS (4)
  - Infection [Unknown]
  - Febrile neutropenia [Unknown]
  - Bone marrow toxicity [Unknown]
  - Pneumonia [Unknown]

NARRATIVE: CASE EVENT DATE: 2017
